FAERS Safety Report 20303514 (Version 2)
Quarter: 2022Q1

REPORT INFORMATION
  Report Type: Report from Study
  Country: HU (occurrence: HU)
  Receive Date: 20220106
  Receipt Date: 20220110
  Transmission Date: 20220423
  Serious: Yes (Death, Hospitalization, Other)
  Sender: FDA-Public Use
  Company Number: HU-002147023-NVSC2021HU288205

PATIENT
  Age: 62 Year
  Sex: Male

DRUGS (19)
  1. LEVOFLOXACIN [Suspect]
     Active Substance: LEVOFLOXACIN
     Indication: Product used for unknown indication
     Dosage: UNK (500 MG, 2X)
     Route: 065
  2. NEBIVOLOL [Suspect]
     Active Substance: NEBIVOLOL
     Indication: Product used for unknown indication
     Dosage: UNK (5 MG, 1X)
     Route: 065
  3. FILGRASTIM [Suspect]
     Active Substance: FILGRASTIM
     Indication: Neutropenia
     Dosage: UNK
     Route: 058
     Dates: start: 20210902
  4. CEFTRIAXONE SODIUM [Concomitant]
     Active Substance: CEFTRIAXONE SODIUM
     Indication: Product used for unknown indication
     Dosage: UNK
     Route: 065
  5. FAVIPIRAVIR [Concomitant]
     Active Substance: FAVIPIRAVIR
     Indication: Product used for unknown indication
     Dosage: UNK
     Route: 048
     Dates: start: 202111
  6. Klion [Concomitant]
     Indication: Product used for unknown indication
     Dosage: UNK
     Route: 065
  7. Diben [Concomitant]
     Indication: Product used for unknown indication
     Dosage: UNK
     Route: 065
  8. CONTROLOC [Concomitant]
     Active Substance: PANTOPRAZOLE SODIUM
     Indication: Product used for unknown indication
     Dosage: UNK (40 MG, IN THE EVENING)
     Route: 065
  9. VANCOMYCIN [Concomitant]
     Active Substance: VANCOMYCIN
     Indication: Product used for unknown indication
     Dosage: UNK
     Route: 065
  10. SOLU-MEDROL [Concomitant]
     Active Substance: METHYLPREDNISOLONE SODIUM SUCCINATE
     Indication: Product used for unknown indication
     Dosage: UNK (40 MG, 2X)
     Route: 042
  11. METFORMIN HYDROCHLORIDE [Concomitant]
     Active Substance: METFORMIN HYDROCHLORIDE
     Indication: Product used for unknown indication
     Dosage: UNK (500 MG, 1X)
     Route: 065
  12. AMBROXOL [Concomitant]
     Active Substance: AMBROXOL
     Indication: Product used for unknown indication
     Dosage: UNK, BID
     Route: 065
  13. DIOMIN [Concomitant]
     Indication: Product used for unknown indication
     Dosage: UNK (10 DROPS)
     Route: 065
  14. CARBOHYDRATES\FATTY ACIDS\MINERALS\PROTEIN\VITAMINS [Concomitant]
     Active Substance: CARBOHYDRATES\FATTY ACIDS\MINERALS\PROTEIN\VITAMINS
     Indication: Product used for unknown indication
     Dosage: UNK
     Route: 065
  15. ALBUTEROL SULFATE [Concomitant]
     Active Substance: ALBUTEROL SULFATE
     Indication: Product used for unknown indication
     Dosage: UNK (500 ML)
     Route: 042
  16. PERINDOPRIL ARGININE [Concomitant]
     Active Substance: PERINDOPRIL ARGININE
     Indication: Product used for unknown indication
     Dosage: UNK (5 MG, 1X)
     Route: 065
  17. ROSUVASTATIN CALCIUM [Concomitant]
     Active Substance: ROSUVASTATIN CALCIUM
     Indication: Product used for unknown indication
     Dosage: UNK (20 MG, IN THE EVENING)
     Route: 065
  18. ENOXAPARIN SODIUM [Concomitant]
     Active Substance: ENOXAPARIN SODIUM
     Indication: Product used for unknown indication
     Dosage: UNK (0.6 MG, 1X)
     Route: 058
  19. THEOPHYLLINE [Concomitant]
     Active Substance: THEOPHYLLINE
     Indication: Product used for unknown indication
     Dosage: UNK (200 MG, 2X)
     Route: 065

REACTIONS (29)
  - Cardiac failure [Fatal]
  - Respiratory failure [Fatal]
  - Malignant neoplasm progression [Fatal]
  - Small cell lung cancer [Fatal]
  - COVID-19 pneumonia [Fatal]
  - Condition aggravated [Unknown]
  - Hypoxia [Unknown]
  - Treatment failure [Unknown]
  - Ascites [Unknown]
  - Pneumonia [Unknown]
  - Pulmonary oedema [Unknown]
  - Hypotension [Unknown]
  - Full blood count abnormal [Unknown]
  - Pleural effusion [Unknown]
  - Procalcitonin increased [Recovering/Resolving]
  - SARS-CoV-2 test positive [Unknown]
  - Asthenia [Unknown]
  - Leukocytosis [Unknown]
  - Dyspnoea [Unknown]
  - Soft tissue disorder [Unknown]
  - Normocytic anaemia [Unknown]
  - Diarrhoea [Unknown]
  - Secretion discharge [Recovering/Resolving]
  - Rales [Unknown]
  - Cough [Recovering/Resolving]
  - C-reactive protein increased [Recovering/Resolving]
  - Oxygen saturation decreased [Unknown]
  - Fibrin D dimer increased [Unknown]
  - Interleukin level increased [Unknown]

NARRATIVE: CASE EVENT DATE: 20211001
